FAERS Safety Report 8912983 (Version 1)
Quarter: 2012Q4

REPORT INFORMATION
  Report Type: Spontaneous
  Country: US (occurrence: None)
  Receive Date: 20121114
  Receipt Date: 20121114
  Transmission Date: 20130627
  Serious: Yes (Hospitalization)
  Sender: FDA-Public Use
  Company Number: None

PATIENT
  Age: 66 Year
  Sex: Female
  Weight: 115 kg

DRUGS (1)
  1. XARELTO [Suspect]
     Indication: ATRIAL FIBRILLATION
     Dosage: days
     Route: 048
     Dates: start: 20121014, end: 20121019

REACTIONS (5)
  - Pain in extremity [None]
  - Haematoma [None]
  - Seroma [None]
  - Oedema peripheral [None]
  - Skin discolouration [None]
